FAERS Safety Report 14022680 (Version 1)
Quarter: 2017Q3

REPORT INFORMATION
  Report Type: Spontaneous
  Country: PT (occurrence: PT)
  Receive Date: 20170929
  Receipt Date: 20170929
  Transmission Date: 20171128
  Serious: Yes (Other)
  Sender: FDA-Public Use
  Company Number: PT-009507513-1709PRT012151

PATIENT
  Sex: Female

DRUGS (1)
  1. CIRCLET [Suspect]
     Active Substance: ETHINYL ESTRADIOL\ETONOGESTREL
     Indication: CONTRACEPTION
     Dosage: 1 DF, Q3W
     Route: 067

REACTIONS (3)
  - Unintended pregnancy [Not Recovered/Not Resolved]
  - Inappropriate schedule of drug administration [Unknown]
  - Pregnancy with contraceptive device [Not Recovered/Not Resolved]
